FAERS Safety Report 7969897-2 (Version None)
Quarter: 2011Q4

REPORT INFORMATION
  Report Type: 
  Country: None (occurrence: None)
  Receive Date: 20111212
  Receipt Date: 20111201
  Transmission Date: 20120403
  Serious: Yes (Hospitalization, Other)
  Sender: FDA-Public Use
  Company Number: US-AMGEN-USASP2011058972

PATIENT
  Age: 41 Year
  Sex: Female
  Weight: 108 kg

DRUGS (29)
  1. EPOGEN [Suspect]
     Indication: ANAEMIA
     Dosage: 20000 IU, 3 TIMES/WK
     Route: 058
     Dates: start: 20110111
  2. VENOFER [Concomitant]
     Dosage: UNK
     Dates: start: 20111110
  3. VENOFER [Concomitant]
     Dosage: UNK
     Dates: start: 20110620
  4. VENOFER [Concomitant]
     Dosage: UNK
     Dates: start: 20111006
  5. PROTEIN [Concomitant]
     Dosage: UNK
     Route: 048
     Dates: start: 20110111
  6. ARANESP [Suspect]
     Dosage: UNK UNK, Q3WK
     Dates: start: 20090601, end: 20090801
  7. PHOSLO [Concomitant]
     Dosage: 3 MG, TID
     Dates: start: 20100817
  8. LASIX [Concomitant]
     Dosage: 80 MG, TID
     Dates: start: 20110920
  9. ARANESP [Suspect]
     Indication: ANAEMIA
     Dosage: UNK UNK, Q3WK
     Dates: start: 20090901, end: 20100301
  10. VENOFER [Concomitant]
     Dosage: UNK
     Dates: start: 20111019
  11. VITAMIN D [Concomitant]
     Dosage: UNK
     Dates: start: 20090930
  12. FLUVAX [Concomitant]
     Dosage: 0.5 ML, UNK
     Route: 030
     Dates: start: 20091007
  13. EPOGEN [Suspect]
     Dosage: 2000 IU, 2 TIMES/WK
     Dates: start: 20100301
  14. PROFERRIN [Concomitant]
     Dosage: 1 MG, BID
     Dates: start: 20110124
  15. VENOFER [Concomitant]
     Dosage: UNK
     Dates: start: 20110718
  16. FERAHEME [Concomitant]
     Dosage: UNK
     Route: 042
     Dates: start: 20090810, end: 20110111
  17. FLUVAX [Concomitant]
     Dosage: 0.5 UNK, UNK
     Route: 030
     Dates: start: 20111006
  18. COLACE [Concomitant]
     Dosage: 100 MG, PRN
     Dates: start: 20111110
  19. ARANESP [Suspect]
     Dosage: UNK
     Dates: start: 20090401, end: 20100101
  20. ENGERIX B VACCIN [Concomitant]
     Dosage: UNK
     Dates: start: 20090625
  21. ENGERIX B VACCIN [Concomitant]
     Dosage: UNK
     Dates: start: 20090723
  22. VENOFER [Concomitant]
     Dosage: UNK
     Dates: start: 20110817
  23. LEVAQUIN [Concomitant]
     Dosage: 500 MG, PRN
     Route: 048
     Dates: start: 20110817
  24. VENOFER [Concomitant]
     Dosage: UNK
     Dates: start: 20110624
  25. VENOFER [Concomitant]
     Dosage: UNK
     Dates: start: 20110922
  26. VITAMIN D [Concomitant]
  27. ENGERIX B VACCIN [Concomitant]
     Dosage: UNK
     Dates: start: 20091211
  28. VENOFER [Concomitant]
     Dosage: 200 MG, Q2MO
     Route: 042
     Dates: start: 20110314
  29. VENOFER [Concomitant]
     Dosage: UNK
     Dates: start: 20110929

REACTIONS (20)
  - ABDOMINAL DISTENSION [None]
  - WEIGHT INCREASED [None]
  - NAUSEA [None]
  - INCORRECT ROUTE OF DRUG ADMINISTRATION [None]
  - POST PROCEDURAL HAEMORRHAGE [None]
  - GYNAECOLOGICAL EXAMINATION ABNORMAL [None]
  - CATHETER SITE EROSION [None]
  - PYREXIA [None]
  - THERAPEUTIC RESPONSE DECREASED [None]
  - INFECTION [None]
  - CATHETER PLACEMENT [None]
  - VOMITING [None]
  - BLOOD GLUCOSE ABNORMAL [None]
  - GENERALISED OEDEMA [None]
  - URINE OUTPUT DECREASED [None]
  - CATHETER SITE SWELLING [None]
  - HERNIA [None]
  - INFECTIOUS PERITONITIS [None]
  - IRON DEFICIENCY ANAEMIA [None]
  - URINE FLOW DECREASED [None]
